FAERS Safety Report 23882712 (Version 2)
Quarter: 2024Q3

REPORT INFORMATION
  Report Type: Spontaneous
  Country: US (occurrence: None)
  Receive Date: 20240522
  Receipt Date: 20240709
  Transmission Date: 20241017
  Serious: No
  Sender: ASTRAZENECA
  Company Number: 2024A107022

PATIENT
  Sex: Female

DRUGS (1)
  1. SYMBICORT [Suspect]
     Active Substance: BUDESONIDE\FORMOTEROL FUMARATE DIHYDRATE
     Dosage: 160 UG, UNKNOWN UNKNOWN
     Route: 055

REACTIONS (9)
  - Dyspnoea [Unknown]
  - Memory impairment [Unknown]
  - Visual impairment [Unknown]
  - Speech disorder [Unknown]
  - Frustration tolerance decreased [Unknown]
  - Off label use [Unknown]
  - Device use issue [Unknown]
  - Wrong technique in device usage process [Unknown]
  - Device delivery system issue [Unknown]
